FAERS Safety Report 8489563-7 (Version None)
Quarter: 2012Q2

REPORT INFORMATION
  Report Type: 
  Country: None (occurrence: None)
  Receive Date: 20120626
  Receipt Date: 20120620
  Transmission Date: 20120825
  Serious: Yes (Other)
  Sender: FDA-Public Use
  Company Number: ENTC2012-0273

PATIENT
  Age: 65 Year
  Sex: Female

DRUGS (7)
  1. STALEVO 50 [Suspect]
     Indication: PARKINSON'S DISEASE
     Dosage: 100/25/200 4/1 DAY
     Dates: end: 20120301
  2. BISOPROLOL FUMARATE [Concomitant]
  3. ACETAMINOPHEN AND CODEINE PHOSPHATE [Concomitant]
  4. LEVOTHYROXINE SODIUM [Concomitant]
  5. MOVIPREP [Concomitant]
  6. ASPIRIN [Concomitant]
  7. CALCIUM AND COLECALCIFEROL [Concomitant]

REACTIONS (2)
  - DEPRESSION [None]
  - IRRITABILITY [None]
